FAERS Safety Report 5281266-5 (Version None)
Quarter: 2007Q1

REPORT INFORMATION
  Report Type: 
  Country: None (occurrence: None)
  Receive Date: 20061218
  Receipt Date: 20060303
  Transmission Date: 20070707
  Serious: Yes (Other)
  Sender: FDA-Public Use
  Company Number: US200603001104

PATIENT
  Age: 28 Year
  Sex: Male

DRUGS (2)
  1. HUMULIN 70/30 [Suspect]
     Indication: DIABETES MELLITUS
  2. LANTUS [Concomitant]

REACTIONS (3)
  - BLOOD GLUCOSE ABNORMAL [None]
  - BLOOD GLUCOSE DECREASED [None]
  - HYPOGLYCAEMIA UNAWARENESS [None]
